FAERS Safety Report 18728221 (Version 2)
Quarter: 2021Q1

REPORT INFORMATION
  Report Type: Spontaneous
  Country: US (occurrence: US)
  Receive Date: 20210112
  Receipt Date: 20210112
  Transmission Date: 20210419
  Serious: Yes (Hospitalization, Other)
  Sender: FDA-Public Use
  Company Number: US-DENTSPLY-2021SCDP000005

PATIENT
  Sex: Female

DRUGS (1)
  1. ISOPROPYL ALCOHOL. [Suspect]
     Active Substance: ISOPROPYL ALCOHOL
     Indication: PRODUCT USED FOR UNKNOWN INDICATION
     Dosage: BAY RUM
     Route: 048

REACTIONS (11)
  - Lethargy [Unknown]
  - Renal tubular necrosis [Unknown]
  - Asthenia [Not Recovered/Not Resolved]
  - Disorientation [Unknown]
  - Osmolar gap increased [Recovered/Resolved]
  - Abnormal behaviour [Unknown]
  - Blood sodium decreased [Unknown]
  - Blood creatinine increased [Recovering/Resolving]
  - Accidental exposure to product [Unknown]
  - Toxicity to various agents [Unknown]
  - Blood urea increased [Unknown]
